FAERS Safety Report 8063927-8 (Version None)
Quarter: 2012Q1

REPORT INFORMATION
  Report Type: 
  Country: None (occurrence: None)
  Receive Date: 20120123
  Receipt Date: 20120116
  Transmission Date: 20120608
  Serious: Yes (Other)
  Sender: FDA-Public Use
  Company Number: BR-PFIZER INC-2012011893

PATIENT
  Age: 73 Year
  Sex: Female

DRUGS (3)
  1. COMBIGAN [Concomitant]
     Dosage: UNK
  2. XALATAN [Suspect]
     Dosage: UNK
     Route: 047
     Dates: start: 20060101
  3. AZOPT [Concomitant]
     Dosage: UNK

REACTIONS (2)
  - GLAUCOMA SURGERY [None]
  - VISUAL IMPAIRMENT [None]
